FAERS Safety Report 4831064-9 (Version None)
Quarter: 2005Q4

REPORT INFORMATION
  Report Type: 
  Country: None (occurrence: None)
  Receive Date: 20051114
  Receipt Date: 20051031
  Transmission Date: 20060501
  Serious: Yes (Other)
  Sender: FDA-Public Use
  Company Number: EWC051147070

PATIENT
  Age: 34 Year
  Sex: Male

DRUGS (2)
  1. STRATTERA [Suspect]
     Indication: ATTENTION DEFICIT/HYPERACTIVITY DISORDER
     Dosage: 120 MG/1 DAY
     Dates: start: 20050501
  2. TOFRANIL [Concomitant]

REACTIONS (7)
  - ANGER [None]
  - ANXIETY [None]
  - DEPRESSED MOOD [None]
  - DRUG INEFFECTIVE [None]
  - IRRITABILITY [None]
  - MARITAL PROBLEM [None]
  - TREATMENT NONCOMPLIANCE [None]
